FAERS Safety Report 17728133 (Version 1)
Quarter: 2020Q2

REPORT INFORMATION
  Report Type: Spontaneous
  Country: US (occurrence: US)
  Receive Date: 20200430
  Receipt Date: 20200430
  Transmission Date: 20200714
  Serious: No
  Sender: FDA-Public Use
  Company Number: US-ABBVIE-19K-163-2929941-00

PATIENT
  Age: 67 Year
  Sex: Female
  Weight: 54.48 kg

DRUGS (2)
  1. CREON [Suspect]
     Active Substance: PANCRELIPASE AMYLASE\PANCRELIPASE LIPASE\PANCRELIPASE PROTEASE
     Indication: DYSPEPSIA
     Dosage: 2 CAPSULES IN THE MORNING, 2 CAPSULES DURING LUNCH AND 2 CAPSULES AT NIGHT
     Route: 048
     Dates: start: 20190425, end: 201908
  2. TIAZAC [Concomitant]
     Active Substance: DILTIAZEM HYDROCHLORIDE
     Indication: BLOOD PRESSURE MEASUREMENT

REACTIONS (2)
  - Abdominal distension [Recovered/Resolved]
  - Abdominal pain upper [Recovered/Resolved]

NARRATIVE: CASE EVENT DATE: 201904
